FAERS Safety Report 8442833-0 (Version None)
Quarter: 2012Q2

REPORT INFORMATION
  Report Type: 
  Country: None (occurrence: None)
  Receive Date: 20120615
  Receipt Date: 20120605
  Transmission Date: 20120825
  Serious: Yes (Hospitalization)
  Sender: FDA-Public Use
  Company Number: US-SANOFI-AVENTIS-2012SA040266

PATIENT
  Age: 66 Year
  Sex: Male

DRUGS (2)
  1. SOLOSTAR [Suspect]
  2. LANTUS [Suspect]
     Dosage: DOSE:46 UNIT(S)
     Route: 058
     Dates: start: 20120101

REACTIONS (4)
  - BRONCHOPNEUMONIA [None]
  - DYSURIA [None]
  - PYREXIA [None]
  - COUGH [None]
